FAERS Safety Report 10383672 (Version 1)
Quarter: 2014Q3

REPORT INFORMATION
  Report Type: Report from Study
  Country: JP (occurrence: JP)
  Receive Date: 20140814
  Receipt Date: 20140814
  Transmission Date: 20150326
  Serious: Yes (Hospitalization)
  Sender: FDA-Public Use
  Company Number: JP-009507513-1408JPN007921

PATIENT
  Age: 81 Year
  Sex: Female

DRUGS (12)
  1. GLACTIV [Suspect]
     Active Substance: SITAGLIPTIN
     Dosage: 50 MG, ONCE A DAY AFTER BREAKFAST
     Route: 048
     Dates: start: 20120418
  2. GLACTIV [Suspect]
     Active Substance: SITAGLIPTIN
     Indication: TYPE 2 DIABETES MELLITUS
     Dosage: 25  MG ONCE A DAY AFTER BREAKFAST
     Route: 048
     Dates: start: 20100714, end: 20120417
  3. BLOPRESS [Concomitant]
     Active Substance: CANDESARTAN CILEXETIL
     Dosage: UNK
     Dates: start: 2012, end: 20120820
  4. AMLODIN OD [Concomitant]
     Active Substance: AMLODIPINE BESYLATE
  5. AMARYL [Concomitant]
     Active Substance: GLIMEPIRIDE
  6. URSO [Concomitant]
     Active Substance: URSODIOL
  7. BLOPRESS [Concomitant]
     Active Substance: CANDESARTAN CILEXETIL
     Dosage: UNK
     Dates: end: 2012
  8. BLOPRESS [Concomitant]
     Active Substance: CANDESARTAN CILEXETIL
     Dosage: UNK
     Dates: start: 20120821, end: 20130420
  9. METFORMIN [Concomitant]
     Active Substance: METFORMIN HYDROCHLORIDE
  10. METFORMIN HYDROCHLORIDE. [Concomitant]
     Active Substance: METFORMIN HYDROCHLORIDE
  11. AMLODIN OD [Concomitant]
     Active Substance: AMLODIPINE BESYLATE
  12. BLOPRESS [Concomitant]
     Active Substance: CANDESARTAN CILEXETIL
     Dosage: UNK
     Dates: end: 20120611

REACTIONS (1)
  - Pulmonary tuberculosis [Recovering/Resolving]

NARRATIVE: CASE EVENT DATE: 20121002
